FAERS Safety Report 13658715 (Version 1)
Quarter: 2017Q2

REPORT INFORMATION
  Report Type: Spontaneous
  Country: US (occurrence: US)
  Receive Date: 20170615
  Receipt Date: 20170615
  Transmission Date: 20170830
  Serious: Yes (Death, Hospitalization)
  Sender: FDA-Public Use
  Company Number: None

PATIENT
  Age: 73 Year
  Sex: Female
  Weight: 73.9 kg

DRUGS (3)
  1. OXYCODONE [Concomitant]
     Active Substance: OXYCODONE
  2. CARBOPLATIN. [Suspect]
     Active Substance: CARBOPLATIN
     Dates: end: 20170512
  3. GEMCITABINE HYDROCHLORIDE. [Suspect]
     Active Substance: GEMCITABINE HYDROCHLORIDE
     Dates: end: 20170512

REACTIONS (23)
  - Vomiting [None]
  - Atelectasis [None]
  - Dyspnoea [None]
  - Hypoxia [None]
  - Pneumonia [None]
  - Abdominal distension [None]
  - Electrocardiogram ST-T change [None]
  - Gastrooesophageal reflux disease [None]
  - Asthenia [None]
  - Aspiration [None]
  - Small intestinal obstruction [None]
  - Electrocardiogram QT prolonged [None]
  - Lung infiltration [None]
  - Abdominal pain [None]
  - Dyspnoea exertional [None]
  - Decreased appetite [None]
  - Hypoventilation [None]
  - Nausea [None]
  - Malaise [None]
  - Sinus tachycardia [None]
  - Intestinal dilatation [None]
  - Fatigue [None]
  - Hypersomnia [None]

NARRATIVE: CASE EVENT DATE: 20170607
